FAERS Safety Report 11931875 (Version 1)
Quarter: 2016Q1

REPORT INFORMATION
  Report Type: Spontaneous
  Country: IT (occurrence: IT)
  Receive Date: 20160120
  Receipt Date: 20160120
  Transmission Date: 20160526
  Serious: Yes (Other)
  Sender: FDA-Public Use
  Company Number: IT-JNJFOC-20151226020

PATIENT
  Age: 43 Year
  Sex: Male
  Weight: 75 kg

DRUGS (15)
  1. VORICONAZOLE. [Interacting]
     Active Substance: VORICONAZOLE
     Indication: RENAL ABSCESS
     Route: 042
  2. TENOFOVIR [Concomitant]
     Active Substance: TENOFOVIR
     Indication: PRODUCT USED FOR UNKNOWN INDICATION
     Route: 065
  3. RALTEGRAVIR. [Concomitant]
     Active Substance: RALTEGRAVIR
     Indication: PRODUCT USED FOR UNKNOWN INDICATION
     Route: 065
  4. VORICONAZOLE. [Interacting]
     Active Substance: VORICONAZOLE
     Indication: RENAL ABSCESS
     Route: 048
  5. EMTRICITABINE [Concomitant]
     Active Substance: EMTRICITABINE
     Indication: PRODUCT USED FOR UNKNOWN INDICATION
     Route: 065
  6. PANTOPRAZOLE [Concomitant]
     Active Substance: PANTOPRAZOLE SODIUM
     Indication: PRODUCT USED FOR UNKNOWN INDICATION
     Route: 065
  7. PREGABALIN. [Concomitant]
     Active Substance: PREGABALIN
     Indication: NEUROPATHY PERIPHERAL
     Route: 065
  8. HALOPERIDOL. [Suspect]
     Active Substance: HALOPERIDOL
     Indication: HALLUCINATION, AUDITORY
     Route: 048
  9. DELORAZEPAM [Suspect]
     Active Substance: DELORAZEPAM
     Indication: HALLUCINATION, AUDITORY
     Route: 065
  10. ATOVAQUONE. [Concomitant]
     Active Substance: ATOVAQUONE
     Indication: PRODUCT USED FOR UNKNOWN INDICATION
     Route: 065
  11. VORICONAZOLE. [Interacting]
     Active Substance: VORICONAZOLE
     Indication: RENAL ABSCESS
     Route: 048
  12. AZITHROMYCIN ANHYDROUS. [Concomitant]
     Active Substance: AZITHROMYCIN ANHYDROUS
     Indication: TOXOPLASMOSIS
     Route: 065
  13. TRAMADOL. [Concomitant]
     Active Substance: TRAMADOL
     Indication: PRODUCT USED FOR UNKNOWN INDICATION
     Route: 065
  14. VORICONAZOLE. [Interacting]
     Active Substance: VORICONAZOLE
     Indication: RENAL ABSCESS
     Route: 042
  15. VORICONAZOLE. [Interacting]
     Active Substance: VORICONAZOLE
     Indication: RENAL ABSCESS
     Route: 048

REACTIONS (3)
  - Drug interaction [Unknown]
  - Hepatotoxicity [Recovered/Resolved]
  - Drug level increased [Unknown]
